FAERS Safety Report 9003202 (Version 2)
Quarter: 2014Q3

REPORT INFORMATION
  Report Type: Spontaneous
  Country: MX (occurrence: MX)
  Receive Date: 20130108
  Receipt Date: 20140730
  Transmission Date: 20150326
  Serious: Yes (Other)
  Sender: FDA-Public Use
  Company Number: PHHY2013MX001731

PATIENT
  Age: 76 Year
  Sex: Female

DRUGS (1)
  1. EXELON PATCH [Suspect]
     Active Substance: RIVASTIGMINE
     Indication: DEMENTIA ALZHEIMER^S TYPE
     Dosage: 4.6 MG, DAILY
     Route: 062
     Dates: start: 201209

REACTIONS (6)
  - Cerebral thrombosis [Recovered/Resolved]
  - Spinal disorder [Recovered/Resolved]
  - Abasia [Recovered/Resolved]
  - Aphagia [Recovered/Resolved]
  - Crying [Recovered/Resolved]
  - Nerve compression [Recovered/Resolved]
